FAERS Safety Report 9992286 (Version 1)
Quarter: 2014Q1

REPORT INFORMATION
  Report Type: Spontaneous
  Country: US (occurrence: US)
  Receive Date: 20140310
  Receipt Date: 20140310
  Transmission Date: 20141002
  Serious: Yes (Other)
  Sender: FDA-Public Use
  Company Number: US-PFIZER INC-2014068520

PATIENT
  Age: 14 Year
  Sex: Female
  Weight: 56.7 kg

DRUGS (2)
  1. VENLAFAXINE HCL [Suspect]
     Indication: ANTIDEPRESSANT THERAPY
     Dosage: 150 MG, DAILY
     Dates: start: 2013
  2. ZOFRAN [Concomitant]
     Indication: NAUSEA
     Dosage: 8 MG, DAILY

REACTIONS (4)
  - Off label use [Unknown]
  - Angina pectoris [Unknown]
  - Pulse abnormal [Unknown]
  - Metabolic function test abnormal [Unknown]
